FAERS Safety Report 9776728 (Version 1)
Quarter: 2013Q4

REPORT INFORMATION
  Report Type: Spontaneous
  Country: US (occurrence: US)
  Receive Date: 20131220
  Receipt Date: 20131220
  Transmission Date: 20140711
  Serious: Yes (Other)
  Sender: FDA-Public Use
  Company Number: PHHY2013US147797

PATIENT
  Age: 36 Year
  Sex: Male

DRUGS (5)
  1. RIBAVIRIN [Suspect]
     Indication: HEPATITIS C VIRUS TEST POSITIVE
  2. TELAPREVIR [Suspect]
     Indication: HEPATITIS C VIRUS TEST POSITIVE
     Dosage: 2250 MG/DAY (TWO TABLETS EVERY 8 HOUR)
     Route: 048
  3. PEGINTERFERON [Suspect]
     Indication: HEPATITIS C VIRUS TEST POSITIVE
     Dosage: 180 UG/WEEK
     Route: 058
  4. EMTRICITABINE W/TENOFOVIR [Concomitant]
     Indication: ANTIRETROVIRAL THERAPY
  5. ATAZANAVIR W/RITONAVIR [Concomitant]
     Indication: ANTIRETROVIRAL THERAPY

REACTIONS (3)
  - Psychotic disorder [Unknown]
  - Neutropenia [Unknown]
  - Jaundice [Unknown]
